FAERS Safety Report 7955201-2 (Version None)
Quarter: 2011Q4

REPORT INFORMATION
  Report Type: 
  Country: None (occurrence: None)
  Receive Date: 20111202
  Receipt Date: 20111123
  Transmission Date: 20120403
  Serious: Yes (Other)
  Sender: FDA-Public Use
  Company Number: US-US-EMD SERONO, INC.-7097233

PATIENT

DRUGS (13)
  1. PREMARIN [Concomitant]
  2. ORAMORPH SR [Concomitant]
  3. ACTONEL [Concomitant]
  4. CELEBREX [Concomitant]
  5. PROTONIX [Concomitant]
  6. ZOCOR [Concomitant]
  7. NITROFURANTOIN [Concomitant]
  8. EFFEXOR [Concomitant]
  9. ACYCLOVIR [Concomitant]
     Indication: HERPES VIRUS INFECTION
  10. REBIF [Suspect]
     Indication: MULTIPLE SCLEROSIS
     Dates: start: 20060701, end: 20110701
  11. VERAPAMIL [Concomitant]
  12. BACLOFEN [Concomitant]
  13. VESICARE [Concomitant]

REACTIONS (2)
  - SURGERY [None]
  - POST PROCEDURAL INFECTION [None]
